FAERS Safety Report 15612240 (Version 5)
Quarter: 2025Q4

REPORT INFORMATION
  Report Type: Spontaneous
  Country: JP (occurrence: JP)
  Receive Date: 20181113
  Receipt Date: 20251109
  Transmission Date: 20260117
  Serious: Yes (Other)
  Sender: MERCK SHARP & DOHME LLC
  Company Number: JP-009507513-1811JPN004786

PATIENT

DRUGS (2)
  1. APREPITANT [Interacting]
     Active Substance: APREPITANT
     Indication: Prophylaxis of nausea and vomiting
     Dosage: DOSE DESCRIPTION : UNK
     Route: 048
  2. FENTANYL [Interacting]
     Active Substance: FENTANYL
     Dosage: DOSE DESCRIPTION : UNK; FOMULATION: TAPE INCLUDING POULTICE
     Route: 062

REACTIONS (1)
  - Depressed level of consciousness [Unknown]
